FAERS Safety Report 18980160 (Version 1)
Quarter: 2021Q1

REPORT INFORMATION
  Report Type: Spontaneous
  Country: US (occurrence: US)
  Receive Date: 20210305
  Receipt Date: 20210305
  Transmission Date: 20210420
  Serious: Yes (Hospitalization)
  Sender: FDA-Public Use
  Company Number: None

PATIENT
  Sex: Female

DRUGS (1)
  1. COLISTIMETHATE [Suspect]
     Active Substance: COLISTIMETHATE SODIUM
     Indication: BRONCHIECTASIS
     Dosage: ?          OTHER FREQUENCY:BID X 14DAY;OTHER ROUTE:INHALE?
     Dates: start: 20210202

REACTIONS (1)
  - Pulmonary thrombosis [None]
